FAERS Safety Report 9371132 (Version 1)
Quarter: 2013Q2

REPORT INFORMATION
  Report Type: Spontaneous
  Country: US (occurrence: None)
  Receive Date: 20130626
  Receipt Date: 20130626
  Transmission Date: 20140414
  Serious: No
  Sender: FDA-Public Use
  Company Number: None

PATIENT
  Age: 41 Year
  Sex: Female
  Weight: 65.32 kg

DRUGS (1)
  1. PARAGUARD IUD [Suspect]

REACTIONS (1)
  - Device dislocation [None]
